FAERS Safety Report 4513685-6 (Version None)
Quarter: 2004Q4

REPORT INFORMATION
  Report Type: 
  Country: None (occurrence: None)
  Receive Date: 20041130
  Receipt Date: 20040826
  Transmission Date: 20050328
  Serious: No
  Sender: FDA-Public Use
  Company Number: US-GLAXOSMITHKLINE-A0523629A

PATIENT
  Age: 36 Year
  Sex: Male
  Weight: 79.5 kg

DRUGS (3)
  1. WELLBUTRIN XL [Suspect]
     Route: 048
  2. WELLBUTRIN SR [Suspect]
     Indication: DEPRESSION
     Dosage: 300MG PER DAY
     Route: 048
     Dates: start: 20040727
  3. HYTRIN [Concomitant]
     Dosage: 1MG PER DAY
     Dates: start: 20040903

REACTIONS (1)
  - HYPERHIDROSIS [None]
